FAERS Safety Report 9788332 (Version 1)
Quarter: 2013Q4

REPORT INFORMATION
  Report Type: Spontaneous
  Country: FR (occurrence: FR)
  Receive Date: 20131230
  Receipt Date: 20131230
  Transmission Date: 20140711
  Serious: Yes (Other)
  Sender: FDA-Public Use
  Company Number: US-ASTRAZENECA-2013SE93303

PATIENT
  Age: 39 Year
  Sex: Female

DRUGS (7)
  1. ATACAND [Suspect]
     Indication: HYPERTENSION
     Dosage: QD
     Route: 048
     Dates: start: 20130110, end: 20130118
  2. AMLOR [Suspect]
     Indication: HYPERTENSION
     Dosage: QD
     Route: 065
     Dates: start: 20130110, end: 20130118
  3. ATRIPLA [Suspect]
     Indication: HIV INFECTION
     Route: 065
     Dates: start: 20110510, end: 20130306
  4. TRUVADA [Suspect]
     Indication: HIV INFECTION
     Dosage: QD
     Route: 065
     Dates: start: 20130307
  5. KALETRA [Suspect]
     Indication: HIV INFECTION
     Route: 065
     Dates: start: 20130307
  6. LOXEN LP [Concomitant]
     Indication: HYPERTENSION
  7. RHOPHYLAC [Concomitant]
     Indication: PRODUCT USED FOR UNKNOWN INDICATION
     Dosage: UNK, QD
     Dates: start: 20130222, end: 20130222

REACTIONS (3)
  - Exposure during pregnancy [Unknown]
  - Gestational diabetes [Unknown]
  - Placenta praevia [Unknown]
